FAERS Safety Report 6825512-2 (Version None)
Quarter: 2010Q3

REPORT INFORMATION
  Report Type: 
  Country: None (occurrence: None)
  Receive Date: 20100708
  Receipt Date: 20070324
  Transmission Date: 20110219
  Serious: No
  Sender: FDA-Public Use
  Company Number: US-PFIZER INC-2006148481

PATIENT
  Sex: Female
  Weight: 37.19 kg

DRUGS (5)
  1. CHANTIX [Suspect]
     Indication: SMOKING CESSATION THERAPY
     Dates: start: 20060906
  2. NEXIUM [Concomitant]
  3. VITAMINS [Concomitant]
  4. ACETYLSALICYLIC ACID [Concomitant]
  5. CALCIUM CARBONATE [Concomitant]

REACTIONS (5)
  - AGITATION [None]
  - DRUG INEFFECTIVE [None]
  - IRRITABILITY [None]
  - NAUSEA [None]
  - VOMITING [None]
